FAERS Safety Report 4608602-4 (Version None)
Quarter: 2005Q1

REPORT INFORMATION
  Report Type: 
  Country: None (occurrence: None)
  Receive Date: 20050311
  Receipt Date: 20050228
  Transmission Date: 20050727
  Serious: Yes (Hospitalization)
  Sender: FDA-Public Use
  Company Number: RENA-11295

PATIENT
  Age: 70 Year
  Sex: Male

DRUGS (6)
  1. PHOSBLOCK - 250 MG TABLET [Suspect]
     Indication: HYPERPHOSPHATAEMIA
     Dosage: 0.5 G TID PO
     Route: 048
     Dates: start: 20041022, end: 20041117
  2. PHOSBLOCK - 250 MG TABLET [Suspect]
     Indication: HYPERPHOSPHATAEMIA
     Dosage: 0.5 G TID PO
     Route: 048
     Dates: start: 20041126, end: 20050114
  3. PRECIPITATED CALCIUM CARBONATE [Concomitant]
  4. SENNOSIDE A,B [Concomitant]
  5. NIFEDIPINE [Concomitant]
  6. CANDESARTAN CILEXETIL [Concomitant]

REACTIONS (4)
  - ANAEMIA [None]
  - CONDITION AGGRAVATED [None]
  - FAECES DISCOLOURED [None]
  - GASTRODUODENAL ULCER [None]
